FAERS Safety Report 8832121 (Version 2)
Quarter: 2013Q3

REPORT INFORMATION
  Report Type: Spontaneous
  Country: DE (occurrence: DE)
  Receive Date: 20121009
  Receipt Date: 20130805
  Transmission Date: 20140515
  Serious: Yes (Hospitalization, Other)
  Sender: FDA-Public Use
  Company Number: DE-UCBSA-068248

PATIENT
  Sex: Female

DRUGS (9)
  1. VIMPAT [Suspect]
     Dosage: VIA TUBE
  2. VIMPAT [Suspect]
     Dosage: 2X 10 ML (VIA TUBE)
  3. VIMPAT [Suspect]
     Dosage: UPTITRATED (VIA TUBE)
  4. KEPPRA [Suspect]
     Dosage: 1ML=100 MG
  5. ORFIRIL [Suspect]
     Dosage: (STRENGTH:1ML=60 MG), WEEKLY INCREMENT 1 ML, OVERALL TO 8-10ML MAX=480-600 MG
  6. PREGABALIN [Concomitant]
  7. DIAZEPAM [Concomitant]
  8. LIORESAL [Concomitant]
     Dosage: STRENGTH:10 MG
     Route: 048
  9. LIORESAL [Concomitant]
     Dosage: INCREASED DOSE TO 60 MG
     Route: 048

REACTIONS (17)
  - Myoclonus [Unknown]
  - Depressed level of consciousness [Unknown]
  - Weight increased [Recovering/Resolving]
  - Oxygen saturation decreased [Unknown]
  - Insomnia [Unknown]
  - Thrombocytopenia [Unknown]
  - Inappropriate affect [Unknown]
  - Oedema [Unknown]
  - Tachycardia [Unknown]
  - Oculomotor study abnormal [Unknown]
  - Disturbance in attention [Unknown]
  - Akinesia [Unknown]
  - Hyperhidrosis [Unknown]
  - Dystonia [Unknown]
  - Tooth malformation [Not Recovered/Not Resolved]
  - Inappropriate schedule of drug administration [Unknown]
  - Overdose [Unknown]
